FAERS Safety Report 8011967-7 (Version None)
Quarter: 2011Q4

REPORT INFORMATION
  Report Type: 
  Country: None (occurrence: None)
  Receive Date: 20111228
  Receipt Date: 20111227
  Transmission Date: 20120403
  Serious: Yes (Hospitalization)
  Sender: FDA-Public Use
  Company Number: US-GLAXOSMITHKLINE-A0941889A

PATIENT
  Age: 80 Year
  Sex: Male

DRUGS (2)
  1. AVANDIA [Suspect]
     Indication: DIABETES MELLITUS
     Dosage: 8MG PER DAY
     Route: 048
     Dates: start: 20040930, end: 20070806
  2. AVANDAMET [Suspect]
     Indication: DIABETES MELLITUS
     Route: 048
     Dates: start: 20040203, end: 20040930

REACTIONS (6)
  - CEREBROVASCULAR ACCIDENT [None]
  - VENTRICULAR TACHYCARDIA [None]
  - OSTEOPENIA [None]
  - IMPLANTABLE DEFIBRILLATOR INSERTION [None]
  - TRANSIENT ISCHAEMIC ATTACK [None]
  - OSTEOPOROSIS [None]
